FAERS Safety Report 4900624-9 (Version None)
Quarter: 2006Q1

REPORT INFORMATION
  Report Type: 
  Country: None (occurrence: None)
  Receive Date: 20060203
  Receipt Date: 20051230
  Transmission Date: 20060701
  Serious: Yes (Hospitalization)
  Sender: FDA-Public Use
  Company Number: US-BRISTOL-MYERS SQUIBB COMPANY-13233085

PATIENT
  Age: 54 Year
  Sex: Male

DRUGS (11)
  1. COUMADIN [Suspect]
  2. XIGRIS [Suspect]
     Indication: SEPSIS
     Route: 042
     Dates: start: 20050815, end: 20050820
  3. XIGRIS [Suspect]
     Indication: MULTI-ORGAN FAILURE
     Route: 042
     Dates: start: 20050815, end: 20050820
  4. METRONIDAZOLE [Concomitant]
     Dates: start: 20050815, end: 20050817
  5. MIDAZOLAM [Concomitant]
     Dates: start: 20050815, end: 20050824
  6. LEVAQUIN [Concomitant]
     Dates: start: 20050815, end: 20050831
  7. LEVOPHED [Concomitant]
     Dates: start: 20050814, end: 20050824
  8. PROTONIX [Concomitant]
     Dates: start: 20050813, end: 20050831
  9. ZOSYN [Concomitant]
     Dates: start: 20050813, end: 20050827
  10. VANCOMYCIN [Concomitant]
     Dates: start: 20050813, end: 20050902
  11. FENTANYL [Concomitant]
     Dates: start: 20050815, end: 20050824

REACTIONS (10)
  - ACTIVATED PARTIAL THROMBOPLASTIN TIME PROLONGED [None]
  - ACUTE RESPIRATORY DISTRESS SYNDROME [None]
  - CARDIAC ARREST [None]
  - ENDOCARDITIS [None]
  - HAEMODIALYSIS [None]
  - PLATELET COUNT INCREASED [None]
  - RENAL FAILURE ACUTE [None]
  - SEPSIS [None]
  - VENTRICULAR FIBRILLATION [None]
  - WOUND HAEMORRHAGE [None]
